FAERS Safety Report 6129850-0 (Version None)
Quarter: 2009Q1

REPORT INFORMATION
  Report Type: 
  Country: None (occurrence: None)
  Receive Date: 20090323
  Receipt Date: 20090323
  Transmission Date: 20090719
  Serious: No
  Sender: FDA-Public Use
  Company Number: None

PATIENT
  Age: 7 Year
  Sex: Female
  Weight: 36.2878 kg

DRUGS (1)
  1. AZITHROMYCIN [Suspect]
     Indication: BACTERIAL INFECTION
     Dosage: 1 TSP A DAY
     Dates: start: 20090313, end: 20090313

REACTIONS (2)
  - NAUSEA [None]
  - VOMITING [None]
